FAERS Safety Report 6501566-8 (Version None)
Quarter: 2009Q4

REPORT INFORMATION
  Report Type: 
  Country: None (occurrence: None)
  Receive Date: 20091215
  Receipt Date: 20091215
  Transmission Date: 20100525
  Serious: Yes (Other)
  Sender: FDA-Public Use
  Company Number: None

PATIENT
  Age: 87 Year
  Sex: Male
  Weight: 70.3075 kg

DRUGS (1)
  1. TRAVATAN Z [Suspect]
     Dosage: 1 DROP ONCE A DAY AT NIGH OPHTHALMIC ONE TIME
     Route: 047
     Dates: start: 20091211, end: 20091211

REACTIONS (4)
  - BLISTER [None]
  - EYE PAIN [None]
  - EYELID DISORDER [None]
  - FOREIGN BODY SENSATION IN EYES [None]
